FAERS Safety Report 21775095 (Version 4)
Quarter: 2023Q1

REPORT INFORMATION
  Report Type: Spontaneous
  Country: US (occurrence: US)
  Receive Date: 20221225
  Receipt Date: 20230216
  Transmission Date: 20230417
  Serious: Yes (Other)
  Sender: FDA-Public Use
  Company Number: US-AMGEN-USASP2022213281

PATIENT
  Age: 36 Year
  Sex: Female

DRUGS (32)
  1. BLINCYTO [Suspect]
     Active Substance: BLINATUMOMAB
     Indication: B precursor type acute leukaemia
     Dosage: 9 MICROGRAM, CONTINUOUS X4-WEEKS 2-WEEKS OFF THEN CYCLE AGAIN
     Route: 042
     Dates: start: 20221101
  2. BLINCYTO [Suspect]
     Active Substance: BLINATUMOMAB
     Dosage: UNK
     Route: 042
     Dates: start: 20221109
  3. BLINCYTO [Suspect]
     Active Substance: BLINATUMOMAB
     Dosage: UNK
     Route: 042
     Dates: start: 20221116
  4. BLINCYTO [Suspect]
     Active Substance: BLINATUMOMAB
     Dosage: UNK
     Route: 042
     Dates: start: 20221123
  5. BLINCYTO [Suspect]
     Active Substance: BLINATUMOMAB
     Dosage: UNK
     Route: 042
     Dates: start: 20221214
  6. BLINCYTO [Suspect]
     Active Substance: BLINATUMOMAB
     Dosage: UNK
     Route: 042
     Dates: start: 20221215
  7. BLINCYTO [Suspect]
     Active Substance: BLINATUMOMAB
     Dosage: UNK
     Route: 042
     Dates: start: 20221216
  8. BLINCYTO [Suspect]
     Active Substance: BLINATUMOMAB
     Dosage: UNK
     Route: 042
     Dates: start: 20221223
  9. BLINCYTO [Suspect]
     Active Substance: BLINATUMOMAB
     Dosage: UNK
     Route: 042
     Dates: start: 20221230
  10. TASIGNA [Concomitant]
     Active Substance: NILOTINIB
     Dosage: 200 MILLIGRAM
     Dates: start: 20221029
  11. LORAZEPAM [Concomitant]
     Active Substance: LORAZEPAM
  12. ACYCLOVIR [Concomitant]
     Active Substance: ACYCLOVIR
     Dosage: 0.5 MILLIGRAM
  13. SENNA [Concomitant]
     Active Substance: SENNA LEAF\SENNOSIDES\SENNOSIDES A AND B
     Dosage: 8.6 MILLIGRAM, QD
     Route: 048
  14. KEPPRA [Concomitant]
     Active Substance: LEVETIRACETAM
     Dosage: 500 MILLIGRAM, BID
     Route: 048
  15. DOCUSATE [Concomitant]
     Active Substance: DOCUSATE
  16. NEURONTIN [Concomitant]
     Active Substance: GABAPENTIN
  17. HYDROCORTISONE [Concomitant]
     Active Substance: HYDROCORTISONE
  18. CYTARABINE [Concomitant]
     Active Substance: CYTARABINE
  19. PONATINIB [Concomitant]
     Active Substance: PONATINIB
     Dosage: 30 MILLIGRAM, QD
     Route: 048
     Dates: start: 20230201
  20. ATIVAN [Concomitant]
     Active Substance: LORAZEPAM
     Dosage: 0.5 MILLIGRAM
     Route: 048
  21. DICLOFENAC [Concomitant]
     Active Substance: DICLOFENAC
  22. ENOXAPARIN [Concomitant]
     Active Substance: ENOXAPARIN
     Dosage: 60 MILLIGRAM
  23. EVUSHELD [Concomitant]
     Active Substance: CILGAVIMAB\TIXAGEVIMAB
  24. FAMOTIDINE [Concomitant]
     Active Substance: FAMOTIDINE
     Dosage: 20 MILLIGRAM
     Route: 048
  25. FLUCONAZOLE [Concomitant]
     Active Substance: FLUCONAZOLE
     Dosage: 200 MILLIGRAM
     Route: 048
  26. GABAPENTIN [Concomitant]
     Active Substance: GABAPENTIN
     Dosage: 300 MILLIGRAM
     Route: 048
  27. IBUPROFEN [Concomitant]
     Active Substance: IBUPROFEN
     Dosage: 600 MILLIGRAM
     Route: 048
  28. LUPRON DEPOT [Concomitant]
     Active Substance: LEUPROLIDE ACETATE
     Dosage: 11.25 MILLIGRAM
  29. MIRALAX [Concomitant]
     Active Substance: POLYETHYLENE GLYCOL 3350
     Route: 048
  30. ONDANSETRON [Concomitant]
     Active Substance: ONDANSETRON
     Dosage: 4 MILLIGRAM
     Route: 048
  31. TEARS AGAIN [Concomitant]
     Active Substance: POLYVINYL ALCOHOL
  32. VITAMIN D3 [Concomitant]
     Active Substance: CHOLECALCIFEROL
     Dosage: UNK UNK, QD
     Route: 048

REACTIONS (4)
  - Retinal tear [Not Recovered/Not Resolved]
  - Cytokine release syndrome [Unknown]
  - Musculoskeletal chest pain [Unknown]
  - Chest pain [Unknown]

NARRATIVE: CASE EVENT DATE: 20221121
